FAERS Safety Report 7230971-X (Version None)
Quarter: 2011Q1

REPORT INFORMATION
  Report Type: 
  Country: None (occurrence: None)
  Receive Date: 20110107
  Receipt Date: 20101223
  Transmission Date: 20110831
  Serious: Yes (Death, Hospitalization)
  Sender: FDA-Public Use
  Company Number: 2011MA000034

PATIENT
  Age: 66 Year
  Sex: Female

DRUGS (5)
  1. 5-FLUOROURACIL (NO PREF. NAME) [Suspect]
     Indication: BREAST CANCER METASTATIC
     Dates: start: 20101104, end: 20101104
  2. PLITICAN (ALIZAPRIDE HYDROCHLORIDE) [Suspect]
     Indication: BREAST CANCER METASTATIC
     Dates: start: 20101104, end: 20101111
  3. TENSIONORME [Concomitant]
  4. NAVELBINE [Concomitant]
  5. VINORELBINE [Suspect]
     Dosage: 50 MG; QW; IV
     Route: 042
     Dates: start: 20101104, end: 20101111

REACTIONS (5)
  - C-REACTIVE PROTEIN INCREASED [None]
  - ANAEMIA [None]
  - NEUTROPENIA [None]
  - THROMBOCYTOPENIA [None]
  - PYREXIA [None]
